FAERS Safety Report 4606915-3 (Version None)
Quarter: 2005Q1

REPORT INFORMATION
  Report Type: 
  Country: None (occurrence: None)
  Receive Date: 20050309
  Receipt Date: 20050214
  Transmission Date: 20050727
  Serious: Yes (Hospitalization, Other)
  Sender: FDA-Public Use
  Company Number: US_0412109481

PATIENT
  Age: 39 Year
  Sex: Female
  Weight: 57 kg

DRUGS (19)
  1. ZYPREXA [Suspect]
     Dosage: 10 MG AT BEDTIME
     Dates: start: 20030327, end: 20030501
  2. CYMBALTA [Suspect]
     Indication: DEPRESSION
     Dates: start: 20040913
  3. PROZAC [Suspect]
     Indication: HEADACHE
     Dosage: 40 MG IN THE MORNING
     Dates: start: 20020617
  4. LEXAPRO [Concomitant]
  5. TRAZODONE HCL [Concomitant]
  6. VISTARIL [Concomitant]
  7. ATENOLOL [Concomitant]
  8. HYDROCET [Concomitant]
  9. ESGIC-PLUS [Concomitant]
  10. RANITIDINE [Concomitant]
  11. PHENERGAN [Concomitant]
  12. ALPRAZOLAM [Concomitant]
  13. REGLAN [Concomitant]
  14. REMERON (MIRTAZAPINE ORIFARM) [Concomitant]
  15. NEURONTIN [Concomitant]
  16. NORCO [Concomitant]
  17. PHRENILIN FORTE [Concomitant]
  18. ULTRAM [Concomitant]
  19. LORTAB [Concomitant]

REACTIONS (24)
  - ABDOMINAL PAIN [None]
  - ACCIDENTAL OVERDOSE [None]
  - ANOREXIA [None]
  - ANXIETY [None]
  - AORTIC VALVE INCOMPETENCE [None]
  - BLOOD ALBUMIN DECREASED [None]
  - BLOOD TRIGLYCERIDES INCREASED [None]
  - DECREASED APPETITE [None]
  - DEHYDRATION [None]
  - DEPRESSION [None]
  - DERMATITIS CONTACT [None]
  - HEPATIC ENZYME ABNORMAL [None]
  - HERPES SIMPLEX [None]
  - IRRITABILITY [None]
  - JOINT SWELLING [None]
  - MALNUTRITION [None]
  - NAIL DISORDER [None]
  - NAUSEA [None]
  - PANCREATITIS [None]
  - PERIORBITAL OEDEMA [None]
  - PRURITUS [None]
  - PYODERMA [None]
  - VOMITING [None]
  - WEIGHT DECREASED [None]
